FAERS Safety Report 15676103 (Version 1)
Quarter: 2018Q4

REPORT INFORMATION
  Report Type: Report from Study
  Country: IT (occurrence: IT)
  Receive Date: 20181130
  Receipt Date: 20181130
  Transmission Date: 20190205
  Serious: Yes (Other)
  Sender: FDA-Public Use
  Company Number: IT-LEO PHARMA-315346

PATIENT
  Age: 67 Year
  Sex: Female
  Weight: 54 kg

DRUGS (1)
  1. DAIVOBET [Suspect]
     Active Substance: BETAMETHASONE DIPROPIONATE\CALCIPOTRIENE
     Indication: GUTTATE PSORIASIS
     Route: 061
     Dates: start: 20180910, end: 20181019

REACTIONS (3)
  - Product use in unapproved indication [Unknown]
  - Erythema multiforme [Unknown]
  - Rosacea [Unknown]

NARRATIVE: CASE EVENT DATE: 20181015
